FAERS Safety Report 8840602 (Version 1)
Quarter: 2012Q4

REPORT INFORMATION
  Report Type: 
  Country: US (occurrence: US)
  Receive Date: 20121015
  Receipt Date: 20121015
  Transmission Date: 20130627
  Serious: Yes (Other)
  Sender: FDA-Public Use
  Company Number: US-PFIZER INC-2012254935

PATIENT
  Age: 31 Year
  Sex: Male
  Weight: 91 kg

DRUGS (9)
  1. NEURONTIN [Suspect]
     Indication: CONVULSION
     Dosage: UNK
     Dates: start: 20100312, end: 2012
  2. NEURONTIN [Suspect]
     Indication: NERVE INJURY
  3. GABAPENTIN [Suspect]
     Indication: CONVULSION
     Dosage: 800 mg, 3x/day
     Dates: start: 2012, end: 2012
  4. GABAPENTIN [Suspect]
     Indication: NERVE INJURY
  5. DEPAKOTE [Suspect]
     Indication: CONVULSION
     Dosage: 500 mg, daily
     Dates: start: 20100312
  6. DEPAKOTE [Suspect]
     Indication: NERVE INJURY
  7. ABILIFY [Suspect]
     Dosage: UNK
  8. RISPERDAL [Suspect]
     Dosage: UNK
  9. PERAZINE [Suspect]
     Dosage: UNK

REACTIONS (3)
  - Grand mal convulsion [Unknown]
  - Malaise [Unknown]
  - Abdominal pain upper [Unknown]
